FAERS Safety Report 12514082 (Version 1)
Quarter: 2016Q2

REPORT INFORMATION
  Report Type: Spontaneous
  Country: US (occurrence: None)
  Receive Date: 20160629
  Receipt Date: 20160629
  Transmission Date: 20160815
  Serious: No
  Sender: FDA-Public Use
  Company Number: None

PATIENT
  Age: 31 Year
  Sex: Male

DRUGS (4)
  1. TRIPLE ANTIBIOTIC OINTMENT [Concomitant]
     Active Substance: BACITRACIN ZINC\NEOMYCIN\NEOMYCIN SULFATE\POLYMYXIN B SULFATE
  2. RISPERIDONE. [Suspect]
     Active Substance: RISPERIDONE
     Indication: SCHIZOPHRENIA
     Route: 048
     Dates: start: 20151016, end: 20151106
  3. BENZTROPINE [Concomitant]
     Active Substance: BENZTROPINE
  4. HALDOL IMR [Concomitant]

REACTIONS (2)
  - Tachycardia [None]
  - Orthostatic intolerance [None]

NARRATIVE: CASE EVENT DATE: 20151102
